FAERS Safety Report 11921515 (Version 1)
Quarter: 2016Q1

REPORT INFORMATION
  Report Type: Spontaneous
  Country: JP (occurrence: JP)
  Receive Date: 20160115
  Receipt Date: 20160115
  Transmission Date: 20160526
  Serious: Yes (Hospitalization, Other)
  Sender: FDA-Public Use
  Company Number: JP-UCBSA-2015038246

PATIENT
  Age: 4 Year
  Sex: Male
  Weight: 19 kg

DRUGS (6)
  1. DEPAKENE [Concomitant]
     Active Substance: VALPROIC ACID
     Indication: PRODUCT USED FOR UNKNOWN INDICATION
     Dosage: 150 MG, DAILY
     Route: 048
     Dates: start: 20150903, end: 20150905
  2. DEPAKENE [Concomitant]
     Active Substance: VALPROIC ACID
     Dosage: 300 MG
     Dates: start: 20150914, end: 20150917
  3. KEPPRA [Suspect]
     Active Substance: LEVETIRACETAM
     Dosage: 360 MG DAILY
     Route: 048
     Dates: start: 20150930, end: 20151006
  4. DEPAKENE [Concomitant]
     Active Substance: VALPROIC ACID
     Dosage: 350 MG
     Dates: start: 20150918, end: 20151105
  5. KEPPRA [Suspect]
     Active Substance: LEVETIRACETAM
     Indication: EPILEPSY
     Dosage: 180 MG DAILY
     Route: 048
     Dates: start: 20150924, end: 20150929
  6. DEPAKENE [Concomitant]
     Active Substance: VALPROIC ACID
     Dosage: 250 MG DAILY
     Dates: start: 20150906, end: 20150913

REACTIONS (2)
  - Myoclonic epilepsy [Recovered/Resolved]
  - Petit mal epilepsy [Recovered/Resolved]

NARRATIVE: CASE EVENT DATE: 20151005
